FAERS Safety Report 8529959-8 (Version None)
Quarter: 2012Q3

REPORT INFORMATION
  Report Type: 
  Country: None (occurrence: None)
  Receive Date: 20120723
  Receipt Date: 20120716
  Transmission Date: 20120928
  Serious: Yes (Hospitalization, Other)
  Sender: FDA-Public Use
  Company Number: PHHY2012BR062200

PATIENT
  Sex: Female
  Weight: 65 kg

DRUGS (9)
  1. SPIRONOLACTONE [Concomitant]
     Indication: CARDIAC DISORDER
     Dosage: 1 TABLET (100 MG) AFTER LUNCH
     Route: 048
  2. DIOVAN HCT [Suspect]
     Indication: HYPERTENSION
     Dosage: 1 TABLET (160/12.5 MG) A DAY
     Route: 048
  3. DIOVAN HCT [Suspect]
     Dosage: 0.5 TABLET (160/12.5 MG) A DAY
  4. CLONAZEPAM [Concomitant]
     Indication: ANXIETY
     Dosage: 1 TABLET (0.5 MG) AT NIGHT
     Route: 048
  5. FLUOXETINE HCL [Concomitant]
     Indication: ANXIETY
     Dosage: 1 TABLET (20 MG) A DAY
     Route: 048
  6. DIGOXIN [Concomitant]
     Indication: CARDIOMEGALY
     Dosage: 0.5 TABLET (25 MG) A DAY
     Route: 048
  7. LASIX [Concomitant]
     Indication: DIURETIC THERAPY
     Dosage: 1 TABLET (40 MG) IN THE MORNING
     Route: 048
  8. DILTIAZEM HCL [Concomitant]
     Dosage: 0.5 TABLET (60 MG) A DAY
     Route: 048
  9. CLONIDINE HYDROCHLORIDE [Concomitant]
     Indication: HYPERTENSION
     Dosage: 1 TABLET (150 MG) A DAY
     Route: 048

REACTIONS (6)
  - MEMORY IMPAIRMENT [None]
  - WRONG TECHNIQUE IN DRUG USAGE PROCESS [None]
  - BLOOD PRESSURE FLUCTUATION [None]
  - PULMONARY EMBOLISM [None]
  - CONDITION AGGRAVATED [None]
  - SYNCOPE [None]
